FAERS Safety Report 23737645 (Version 13)
Quarter: 2025Q4

REPORT INFORMATION
  Report Type: Report from Study
  Country: US (occurrence: US)
  Receive Date: 20240412
  Receipt Date: 20251218
  Transmission Date: 20260118
  Serious: Yes (Other)
  Sender: PFIZER
  Company Number: US-PFIZER INC-PV202400047701

PATIENT
  Age: 74 Year
  Sex: Female
  Weight: 61.69 kg

DRUGS (6)
  1. BRAFTOVI [Suspect]
     Active Substance: ENCORAFENIB
     Indication: Metastatic malignant melanoma
     Dosage: 450 MG (6 CAPSULES OF 75 MG)
     Route: 048
  2. BRAFTOVI [Suspect]
     Active Substance: ENCORAFENIB
     Dosage: 375 MG (5 CAPSULES OF 75 MG), 1X/DAY (IN THE MORNING)
     Route: 048
     Dates: start: 20240410
  3. BRAFTOVI [Suspect]
     Active Substance: ENCORAFENIB
     Dosage: 375 MG (5 CAPSULES OF 75 MG), 1X/DAY (IN THE MORNING)
     Route: 048
     Dates: start: 20241123
  4. MEKTOVI [Suspect]
     Active Substance: BINIMETINIB
     Indication: Metastatic malignant melanoma
     Dosage: 45 MG (3 TABLETS OF 15 MG), 2X/DAY
     Route: 048
  5. MEKTOVI [Suspect]
     Active Substance: BINIMETINIB
     Dosage: 45 MG (3 TABLETS OF 15 MG), 2X/DAY
     Route: 048
     Dates: start: 20241123
  6. MEKTOVI [Suspect]
     Active Substance: BINIMETINIB
     Dosage: 45 MG (3 TABLETS OF 15 MG), 2X/DAY (IN THE MORNING AND THREE TABLETS AT NIGHT BY MOUTH)
     Route: 048
     Dates: start: 2024

REACTIONS (6)
  - Colostomy [Unknown]
  - Illness [Recovering/Resolving]
  - Urinary tract infection [Unknown]
  - Cough [Unknown]
  - Hypersensitivity [Unknown]
  - Product dose omission in error [Unknown]
